FAERS Safety Report 10588607 (Version 2)
Quarter: 2015Q1

REPORT INFORMATION
  Report Type: Spontaneous
  Country: US (occurrence: US)
  Receive Date: 20141117
  Receipt Date: 20150123
  Transmission Date: 20150720
  Serious: Yes (Hospitalization, Other)
  Sender: FDA-Public Use
  Company Number: US-BAYER-2014-168668

PATIENT
  Age: 22 Year
  Sex: Female
  Weight: 58.96 kg

DRUGS (2)
  1. MIRENA [Suspect]
     Active Substance: LEVONORGESTREL
     Indication: CONTRACEPTION
     Dosage: 20 MCG/24HR, CONT
     Route: 015
     Dates: start: 20081103, end: 20081209
  2. DEPO-PROVERA [Concomitant]
     Active Substance: MEDROXYPROGESTERONE ACETATE
     Dosage: UNK
     Dates: start: 200812, end: 200903

REACTIONS (9)
  - Uterine perforation [None]
  - Emotional distress [None]
  - Device dislocation [None]
  - Medical device pain [None]
  - Complication of device removal [None]
  - Injury [None]
  - Adhesion [None]
  - Abdominal pain [None]
  - Device breakage [None]

NARRATIVE: CASE EVENT DATE: 2008
